FAERS Safety Report 10037398 (Version 2)
Quarter: 2014Q1

REPORT INFORMATION
  Report Type: Spontaneous
  Country: CA (occurrence: CA)
  Receive Date: 20140326
  Receipt Date: 20140327
  Transmission Date: 20141002
  Serious: Yes (Other)
  Sender: FDA-Public Use
  Company Number: CA-AMGEN-CANSP2014020028

PATIENT
  Sex: Male

DRUGS (1)
  1. XGEVA [Suspect]
     Indication: METASTASIS
     Dosage: 120 MG, UNK
     Route: 065

REACTIONS (2)
  - Rib fracture [Recovered/Resolved]
  - Weight decreased [Recovering/Resolving]
